FAERS Safety Report 24093241 (Version 1)
Quarter: 2024Q3

REPORT INFORMATION
  Report Type: Spontaneous
  Country: US (occurrence: US)
  Receive Date: 20240715
  Receipt Date: 20240715
  Transmission Date: 20241016
  Serious: No
  Sender: MERCK
  Company Number: US-009507513-2407USA000307

PATIENT
  Age: 84 Year
  Sex: Male

DRUGS (3)
  1. JANUMET XR [Suspect]
     Active Substance: METFORMIN HYDROCHLORIDE\SITAGLIPTIN PHOSPHATE
     Indication: Type 2 diabetes mellitus
     Dosage: UNK
     Route: 048
     Dates: start: 2019, end: 202403
  2. GLIMEPIRIDE [Concomitant]
     Active Substance: GLIMEPIRIDE
  3. TRADJENTA [Concomitant]
     Active Substance: LINAGLIPTIN
     Dosage: 5MG

REACTIONS (3)
  - Abdominal pain upper [Recovered/Resolved]
  - Diarrhoea [Recovered/Resolved]
  - Abnormal loss of weight [Recovered/Resolved]

NARRATIVE: CASE EVENT DATE: 20240301
